FAERS Safety Report 9520327 (Version 1)
Quarter: 2013Q3

REPORT INFORMATION
  Report Type: Report from Study
  Country: US (occurrence: US)
  Receive Date: 20130912
  Receipt Date: 20130912
  Transmission Date: 20140515
  Serious: Yes (Hospitalization, Other)
  Sender: FDA-Public Use
  Company Number: US-ABBOTT-13P-163-1143637-00

PATIENT
  Age: 54 Year
  Sex: Male

DRUGS (16)
  1. HUMIRA [Suspect]
     Indication: RHEUMATOID ARTHRITIS
  2. ALLERGY SHOTS [Suspect]
     Indication: PRODUCT USED FOR UNKNOWN INDICATION
  3. METHOTREXATE [Concomitant]
     Indication: PRODUCT USED FOR UNKNOWN INDICATION
  4. FOLIC ACID [Concomitant]
     Indication: PRODUCT USED FOR UNKNOWN INDICATION
  5. CYMBALTA [Concomitant]
     Indication: PRODUCT USED FOR UNKNOWN INDICATION
  6. LYRICA [Concomitant]
     Indication: PRODUCT USED FOR UNKNOWN INDICATION
  7. CYCLOBENZAPRINE [Concomitant]
     Indication: PRODUCT USED FOR UNKNOWN INDICATION
     Dosage: QHS
  8. LISINOPRIL HCTZ [Concomitant]
     Indication: PRODUCT USED FOR UNKNOWN INDICATION
     Dosage: 10/12.5MG QD
  9. DICLYCLOMINE [Concomitant]
     Indication: ABDOMINAL PAIN UPPER
     Dosage: QID PRN
  10. LUCOVARAN [Concomitant]
     Indication: STOMATITIS
     Dosage: 1-3 TABS
  11. LUCOVARAN [Concomitant]
     Indication: PROPHYLAXIS
  12. CALCIUM [Concomitant]
     Indication: PRODUCT USED FOR UNKNOWN INDICATION
  13. SYMBICORT [Concomitant]
     Indication: PRODUCT USED FOR UNKNOWN INDICATION
     Dosage: 160/4.5
  14. ACETAMINOPHEN W/HYDROCODONE BITARTRATE [Concomitant]
     Indication: PAIN
     Dosage: 7.5/500MG PRN
  15. OXYGEN [Concomitant]
     Indication: PRODUCT USED FOR UNKNOWN INDICATION
     Dosage: 2 LTS PER NASAL CANULA AT HOME
     Route: 045
  16. ALLERGY MEDICATION [Concomitant]
     Indication: PRODUCT USED FOR UNKNOWN INDICATION

REACTIONS (21)
  - Blood urine present [Unknown]
  - Knee arthroplasty [Unknown]
  - Hypersensitivity [Unknown]
  - Allergic oedema [Unknown]
  - Throat tightness [Unknown]
  - Injection site urticaria [Unknown]
  - Fall [Unknown]
  - Arthritis [Unknown]
  - Deep vein thrombosis [Unknown]
  - Abdominal pain [Unknown]
  - Dehydration [Unknown]
  - Diarrhoea [Unknown]
  - Irritable bowel syndrome [Unknown]
  - Chest pain [Unknown]
  - Rheumatoid arthritis [Unknown]
  - Fibromyalgia [Unknown]
  - Wrong technique in drug usage process [Unknown]
  - Incorrect route of drug administration [Unknown]
  - Incorrect dose administered [Unknown]
  - Injection site bruising [Unknown]
  - Allergic respiratory symptom [Unknown]
